FAERS Safety Report 6442981-0 (Version None)
Quarter: 2009Q4

REPORT INFORMATION
  Report Type: 
  Country: None (occurrence: None)
  Receive Date: 20091117
  Receipt Date: 20091105
  Transmission Date: 20100525
  Serious: Yes (Other)
  Sender: FDA-Public Use
  Company Number: MY-ELI_LILLY_AND_COMPANY-MY200911001523

PATIENT
  Age: 104 Year
  Sex: Female

DRUGS (4)
  1. FORTEO [Suspect]
     Indication: OSTEOPOROSIS
     Dosage: 20 UG, DAILY (1/D)
     Route: 058
     Dates: start: 20091029, end: 20091104
  2. DIGOXIN [Concomitant]
     Dosage: 625 MG, UNKNOWN
     Route: 065
     Dates: start: 20091023
  3. MACROGOL 4000 [Concomitant]
     Dosage: 10 G, UNKNOWN
     Route: 065
     Dates: start: 20091023
  4. PANTOPRAZOLE [Concomitant]
     Dosage: 40 MG, UNKNOWN
     Route: 065
     Dates: start: 20091023

REACTIONS (1)
  - CHILLS [None]
